FAERS Safety Report 24911034 (Version 5)
Quarter: 2025Q1

REPORT INFORMATION
  Report Type: Spontaneous
  Country: IT (occurrence: IT)
  Receive Date: 20250131
  Receipt Date: 20250303
  Transmission Date: 20250408
  Serious: Yes (Death, Hospitalization)
  Sender: NOVARTIS
  Company Number: IT-002147023-NVSC2025IT016782

PATIENT
  Age: 54 Year
  Sex: Male

DRUGS (5)
  1. KESIMPTA [Suspect]
     Active Substance: OFATUMUMAB
     Indication: Multiple sclerosis
     Dosage: 20 MG, QMO
     Route: 058
     Dates: start: 20240311, end: 20241103
  2. NABIXIMOLS [Concomitant]
     Active Substance: NABIXIMOLS
     Indication: Muscle spasticity
     Route: 065
  3. NABIXIMOLS [Concomitant]
     Active Substance: NABIXIMOLS
     Indication: Sexual dysfunction
  4. TADALAFIL [Concomitant]
     Active Substance: TADALAFIL
     Indication: Muscle spasticity
     Route: 065
  5. TADALAFIL [Concomitant]
     Active Substance: TADALAFIL
     Indication: Sexual dysfunction

REACTIONS (2)
  - Hepatitis B reactivation [Fatal]
  - Transaminases increased [Fatal]

NARRATIVE: CASE EVENT DATE: 20241126
